FAERS Safety Report 17529121 (Version 1)
Quarter: 2020Q1

REPORT INFORMATION
  Report Type: Spontaneous
  Country: FR (occurrence: FR)
  Receive Date: 20200311
  Receipt Date: 20200311
  Transmission Date: 20200409
  Serious: Yes (Disabling)
  Sender: FDA-Public Use
  Company Number: FR-MYLANLABS-2020M1026329

PATIENT
  Sex: Male

DRUGS (3)
  1. HYDROCORTANCYL                     /00016204/ [Suspect]
     Active Substance: PREDNISOLONE ACETATE
     Indication: ECZEMA
     Dosage: UNK
  2. HYDROCORTISONE. [Suspect]
     Active Substance: HYDROCORTISONE
     Dosage: UNK
  3. HYDROCORTISONE. [Suspect]
     Active Substance: HYDROCORTISONE
     Indication: ECZEMA
     Dosage: UNK

REACTIONS (4)
  - Asthma [Unknown]
  - Wheelchair user [Recovered/Resolved]
  - Endocrine disorder [Unknown]
  - Immune system disorder [Unknown]
